FAERS Safety Report 9474811 (Version 1)
Quarter: 2013Q3

REPORT INFORMATION
  Report Type: Spontaneous
  Country: IT (occurrence: IT)
  Receive Date: 20130823
  Receipt Date: 20130823
  Transmission Date: 20140515
  Serious: Yes (Hospitalization)
  Sender: FDA-Public Use
  Company Number: PHHY2013IT088443

PATIENT
  Age: 28 Year
  Sex: Male

DRUGS (2)
  1. LEVOFLOXACIN [Suspect]
     Dosage: 500 MG
     Route: 048
  2. PIPERACILLIN+TAZOBACTAM [Suspect]
     Route: 042

REACTIONS (6)
  - Kounis syndrome [Recovered/Resolved]
  - Urticaria [Recovered/Resolved]
  - Pruritus [Recovered/Resolved]
  - Angioedema [Recovered/Resolved]
  - Stridor [Recovered/Resolved]
  - Chest pain [Recovered/Resolved]
